FAERS Safety Report 17433015 (Version 1)
Quarter: 2020Q1

REPORT INFORMATION
  Report Type: Spontaneous
  Country: US (occurrence: US)
  Receive Date: 20200219
  Receipt Date: 20200219
  Transmission Date: 20200409
  Serious: No
  Sender: FDA-Public Use
  Company Number: US-SHIRE-US202006453

PATIENT
  Sex: Male

DRUGS (1)
  1. GATTEX [Suspect]
     Active Substance: TEDUGLUTIDE\WATER
     Indication: SHORT-BOWEL SYNDROME
     Dosage: 3.6 MILLIGRAM, 1X/DAY:QD
     Route: 065

REACTIONS (3)
  - Dehydration [Unknown]
  - Gastrointestinal stoma output increased [Not Recovered/Not Resolved]
  - Diarrhoea [Recovered/Resolved]
